FAERS Safety Report 15769480 (Version 2)
Quarter: 2022Q3

REPORT INFORMATION
  Report Type: Spontaneous
  Country: US (occurrence: US)
  Receive Date: 20181228
  Receipt Date: 20220908
  Transmission Date: 20221026
  Serious: Yes (Hospitalization, Disabling)
  Sender: FDA-Public Use
  Company Number: US-TEVA-2018-US-992609

PATIENT
  Age: 53 Year
  Sex: Female
  Weight: 81.6 kg

DRUGS (17)
  1. DOCETAXEL [Suspect]
     Active Substance: DOCETAXEL
     Indication: Breast cancer female
     Dosage: 6TH CYCLE, DOSAGE: 160MG
     Route: 042
     Dates: start: 20140523, end: 20140523
  2. CARBOPLATIN [Suspect]
     Active Substance: CARBOPLATIN
     Indication: Breast cancer female
     Dosage: DOSAGE: 900MG, FREQUENCY TIME : CYCLICAL
     Route: 042
     Dates: start: 20140207, end: 20140523
  3. TAXOTERE [Suspect]
     Active Substance: DOCETAXEL
     Indication: Breast cancer female
     Dosage: 2ND CYCLE, DOSAGE: 160MG
     Route: 042
     Dates: start: 20140228, end: 20140228
  4. DOCETAXEL [Suspect]
     Active Substance: DOCETAXEL
     Indication: Breast cancer female
     Dosage: 1ST CYCLE, DOSAGE: 160MG
     Route: 042
     Dates: start: 20140207, end: 20140207
  5. DOCETAXEL [Suspect]
     Active Substance: DOCETAXEL
     Dosage: CYCLE 3, DOSAGE: 160MG
     Route: 042
     Dates: start: 20140321, end: 20140321
  6. DOCETAXEL [Suspect]
     Active Substance: DOCETAXEL
     Dosage: CYCLE 4, DOSAGE: 160MG
     Route: 042
     Dates: start: 20140411, end: 20140411
  7. DOCETAXEL [Suspect]
     Active Substance: DOCETAXEL
     Dosage: CYCLE 5, DOSAGE: 160MG
     Route: 042
     Dates: start: 20140502, end: 20140502
  8. PERTUZUMAB [Suspect]
     Active Substance: PERTUZUMAB
     Indication: Breast cancer female
     Dosage: DOSAGE 840MG, FREQUENCY TIME : CYCLICAL
     Route: 042
     Dates: start: 20140207, end: 20140523
  9. TRASTUZUMAB [Suspect]
     Active Substance: TRASTUZUMAB
     Indication: Breast cancer female
     Dosage: DOSAGE 780MG, CYCLICAL, FREQUENCY TIME : CYCLICAL
     Dates: start: 20140207, end: 20150123
  10. LEVOTHYROXINE [Concomitant]
     Active Substance: LEVOTHYROXINE
     Indication: Product used for unknown indication
     Dosage: 175 MILLIGRAM DAILY;
     Route: 048
     Dates: start: 2002
  11. ATORVASTATIN [Concomitant]
     Active Substance: ATORVASTATIN
     Indication: Product used for unknown indication
     Dates: start: 2006
  12. TAMOXIFEN [Concomitant]
     Active Substance: TAMOXIFEN
     Indication: Product used for unknown indication
     Dates: start: 20140130
  13. VYTORIN [Concomitant]
     Active Substance: EZETIMIBE\SIMVASTATIN
     Indication: Product used for unknown indication
     Dates: start: 2007, end: 2015
  14. FLUCONAZOLE [Concomitant]
     Active Substance: FLUCONAZOLE
     Indication: Product used for unknown indication
     Dates: start: 2007, end: 2015
  15. DIAZEPAM [Concomitant]
     Active Substance: DIAZEPAM
     Indication: Product used for unknown indication
     Dates: start: 2007, end: 2015
  16. PENICILLIN [Concomitant]
     Active Substance: PENICILLIN
     Indication: Product used for unknown indication
     Dates: start: 2007, end: 2015
  17. PROMETHAZINE [Concomitant]
     Active Substance: PROMETHAZINE HYDROCHLORIDE
     Indication: Product used for unknown indication
     Dates: start: 2007, end: 2015

REACTIONS (7)
  - Alopecia areata [Not Recovered/Not Resolved]
  - Madarosis [Not Recovered/Not Resolved]
  - Neutropenia [Recovered/Resolved]
  - Constipation [Recovered/Resolved]
  - Pyrexia [Recovered/Resolved]
  - Hair texture abnormal [Not Recovered/Not Resolved]
  - Hair colour changes [Not Recovered/Not Resolved]

NARRATIVE: CASE EVENT DATE: 20140201
